FAERS Safety Report 7341256-5 (Version None)
Quarter: 2011Q1

REPORT INFORMATION
  Report Type: 
  Country: None (occurrence: None)
  Receive Date: 20110309
  Receipt Date: 20110223
  Transmission Date: 20110831
  Serious: Yes (Other)
  Sender: FDA-Public Use
  Company Number: PHHY2011US15072

PATIENT
  Sex: Female

DRUGS (7)
  1. COZAAR [Concomitant]
  2. RECLAST [Suspect]
     Dosage: 5 MG, UNK
     Dates: start: 20090601
  3. MULTI-VITAMINS [Concomitant]
  4. RECLAST [Suspect]
     Dosage: 5 MG, UNK
     Dates: start: 20101101
  5. METHOTREXATE [Concomitant]
  6. ASPIRIN [Concomitant]
     Dosage: 81 MG, UNK
  7. ASCORBIC ACID [Concomitant]

REACTIONS (2)
  - FEMUR FRACTURE [None]
  - FALL [None]
